FAERS Safety Report 5826086-5 (Version None)
Quarter: 2008Q3

REPORT INFORMATION
  Report Type: 
  Country: None (occurrence: None)
  Receive Date: 20080729
  Receipt Date: 20080725
  Transmission Date: 20090109
  Serious: Yes (Hospitalization)
  Sender: FDA-Public Use
  Company Number: JP-EISAI MEDICAL RESEARCH-E2020-02907-SPO-JP

PATIENT
  Age: 74 Year
  Sex: Female

DRUGS (8)
  1. ARICEPT [Suspect]
     Indication: DRUG USE FOR UNKNOWN INDICATION
     Dosage: UNKNOWN
     Route: 048
     Dates: end: 20080612
  2. RISPERDAL [Suspect]
     Indication: RESTLESSNESS
     Dosage: UNKNOWN
     Route: 048
     Dates: start: 20080418, end: 20080521
  3. RISPERDAL [Suspect]
     Dosage: UNKNOWN
     Route: 048
     Dates: start: 20080521, end: 20080602
  4. RISPERDAL [Suspect]
     Dosage: UNKNOWN
     Route: 048
     Dates: start: 20080620
  5. DIOVAN [Suspect]
     Indication: DRUG USE FOR UNKNOWN INDICATION
     Dosage: UNKNOWN
     Route: 048
     Dates: start: 20080430, end: 20080612
  6. ^UNSPECIFIED PSYCHOPHARMACEUTICALS^ [Concomitant]
     Dosage: UNKNOWN
     Route: 048
     Dates: start: 20080501
  7. TIAPRIM (TIAPRIDE HYDROCHLORIDE) [Concomitant]
     Route: 048
     Dates: start: 20080418, end: 20080612
  8. ZOPICOOL [Concomitant]
     Route: 048
     Dates: start: 20080521, end: 20080612

REACTIONS (1)
  - RHABDOMYOLYSIS [None]
